FAERS Safety Report 5671594-3 (Version None)
Quarter: 2008Q1

REPORT INFORMATION
  Report Type: 
  Country: None (occurrence: None)
  Receive Date: 20080313
  Receipt Date: 20080226
  Transmission Date: 20080703
  Serious: Yes (Hospitalization)
  Sender: FDA-Public Use
  Company Number: DSA_31520-2008

PATIENT
  Age: 92 Year
  Sex: Female

DRUGS (6)
  1. ORFIDAL (ORFIDAL - LORAZEPAM) 1 MG [Suspect]
     Indication: DRUG USE FOR UNKNOWN INDICATION
     Dosage: 1 MG QD ORAL   A FEW YEARS
     Route: 048
  2. TRANSTEC (TRANSTEC - BUPRENORPHINE) (NOT SPECIFIED) [Suspect]
     Indication: PAIN
     Dosage: 1 DF 1X3 DAYS TRANSDERMAL
     Route: 062
     Dates: start: 20071206, end: 20071210
  3. NITROGLYN [Concomitant]
  4. PANTOPRAZOLE SODIUM [Concomitant]
  5. NEBIVOLOL HCL [Concomitant]
  6. SIBELIUM [Concomitant]

REACTIONS (4)
  - DISORIENTATION [None]
  - DRUG INTERACTION [None]
  - DYSPNOEA [None]
  - SOMNOLENCE [None]
